FAERS Safety Report 10521855 (Version 1)
Quarter: 2014Q4

REPORT INFORMATION
  Report Type: Spontaneous
  Country: GB (occurrence: None)
  Receive Date: 20141014
  Receipt Date: 20141014
  Transmission Date: 20150528
  Serious: Yes (Congenital Anomaly)
  Sender: FDA-Public Use
  Company Number: 2014-003004

PATIENT

DRUGS (1)
  1. MESALAZINE [Suspect]
     Active Substance: MESALAMINE
     Route: 064

REACTIONS (2)
  - Maternal drugs affecting foetus [None]
  - Fallot^s tetralogy [None]
